FAERS Safety Report 12236889 (Version 1)
Quarter: 2016Q2

REPORT INFORMATION
  Report Type: Spontaneous
  Country: TW (occurrence: TW)
  Receive Date: 20160405
  Receipt Date: 20160405
  Transmission Date: 20160815
  Serious: Yes (Other)
  Sender: FDA-Public Use
  Company Number: TW-AMGEN-TWNSP2016041571

PATIENT
  Age: 56 Year
  Sex: Female

DRUGS (2)
  1. GRAN [Suspect]
     Active Substance: FILGRASTIM
     Indication: NEUTROPENIA
     Dosage: 300MCG / 1 DAY AS NECESSARY (ST)
     Route: 058
     Dates: start: 20150925, end: 20151019
  2. GRAN [Suspect]
     Active Substance: FILGRASTIM
     Dosage: 150MCG / 1 DAY AS NECESSARY (ST)
     Route: 058
     Dates: start: 20151023, end: 20151030

REACTIONS (2)
  - Hypotension [Recovered/Resolved]
  - Oxygen saturation decreased [Recovered/Resolved]

NARRATIVE: CASE EVENT DATE: 20151102
